FAERS Safety Report 4282958-7 (Version None)
Quarter: 2004Q1

REPORT INFORMATION
  Report Type: 
  Country: None (occurrence: None)
  Receive Date: 20040130
  Receipt Date: 20040120
  Transmission Date: 20041129
  Serious: Yes (Hospitalization)
  Sender: FDA-Public Use
  Company Number: NO-BRISTOL-MYERS SQUIBB COMPANY-12488854

PATIENT
  Age: 84 Year
  Sex: Male

DRUGS (8)
  1. SINEMET [Suspect]
     Dosage: DOSE VALUE = 25MG/100MG TABLET
     Route: 048
  2. SPIRONOLACTONE [Suspect]
  3. CLAFORAN [Suspect]
     Indication: PYREXIA
     Route: 042
     Dates: start: 20031205, end: 20040104
  4. CLAFORAN [Suspect]
     Indication: PNEUMONIA ASPIRATION
     Route: 042
     Dates: start: 20031205, end: 20040104
  5. FLAGYL [Suspect]
     Indication: PYREXIA
     Dates: start: 20031218, end: 20031229
  6. DIGITOXIN TAB [Concomitant]
  7. TRIATEC [Concomitant]
  8. ELDEPRYL [Concomitant]

REACTIONS (4)
  - AGRANULOCYTOSIS [None]
  - HAEMOGLOBIN DECREASED [None]
  - NEUTROPENIA [None]
  - PLATELET COUNT INCREASED [None]
